FAERS Safety Report 9435872 (Version 1)
Quarter: 2013Q3

REPORT INFORMATION
  Report Type: Spontaneous
  Country: US (occurrence: US)
  Receive Date: 20130801
  Receipt Date: 20130801
  Transmission Date: 20140515
  Serious: No
  Sender: FDA-Public Use
  Company Number: US-B.I. PHARMACEUTICALS,INC./RIDGEFIELD-2013-BI-22372BP

PATIENT
  Age: 68 Year
  Sex: Male
  Weight: 86 kg

DRUGS (4)
  1. COMBIVENT [Suspect]
     Indication: ASTHMA
     Dosage: STRENGTH: 18 MCG / 103 MCG; DAILY DOSE: 216 MCG/1236 MCG
     Route: 055
     Dates: start: 2011
  2. FLOMAX CAPSULES [Suspect]
     Indication: ENDOCRINE DISORDER
     Dosage: 0.4 MG
     Route: 048
     Dates: start: 2000, end: 20130724
  3. SYMBICORT [Concomitant]
     Indication: ATYPICAL PNEUMONIA
     Dosage: 4 PUF
     Route: 055
     Dates: start: 201303
  4. HYTRIN [Concomitant]
     Indication: ENDOCRINE DISORDER
     Dosage: 10 MG
     Route: 048
     Dates: start: 20130725

REACTIONS (9)
  - Mouth ulceration [Not Recovered/Not Resolved]
  - Atypical pneumonia [Recovered/Resolved]
  - Hypoaesthesia [Not Recovered/Not Resolved]
  - Blood urine [Recovered/Resolved]
  - Dark circles under eyes [Recovered/Resolved]
  - Erythema [Not Recovered/Not Resolved]
  - Erectile dysfunction [Recovered/Resolved]
  - Hypoaesthesia [Not Recovered/Not Resolved]
  - Off label use [Not Recovered/Not Resolved]
